FAERS Safety Report 15004825 (Version 1)
Quarter: 2018Q2

REPORT INFORMATION
  Report Type: Spontaneous
  Country: US (occurrence: US)
  Receive Date: 20180613
  Receipt Date: 20180613
  Transmission Date: 20180711
  Serious: Yes (Other)
  Sender: FDA-Public Use
  Company Number: US-PFIZER INC-2018233218

PATIENT
  Age: 57 Year
  Sex: Male
  Weight: 133.8 kg

DRUGS (1)
  1. SOMAVERT [Suspect]
     Active Substance: PEGVISOMANT
     Indication: ACROMEGALY
     Dosage: 20 MG, DAILY (20 MG INJECTION UNDER THE SKIN)
     Dates: start: 201612, end: 20180401

REACTIONS (1)
  - Pituitary tumour benign [Unknown]
